FAERS Safety Report 10070220 (Version 1)
Quarter: 2014Q2

REPORT INFORMATION
  Report Type: Spontaneous
  Country: GB (occurrence: None)
  Receive Date: 20140408
  Receipt Date: 20140408
  Transmission Date: 20141212
  Serious: Yes (Other)
  Sender: FDA-Public Use
  Company Number: AUR-APL-2014-04183

PATIENT
  Age: 68 Year
  Sex: Male
  Weight: 82.55 kg

DRUGS (3)
  1. TAMSULOSIN (TAMSULOSIN) [Suspect]
     Indication: DYSURIA
     Route: 048
     Dates: start: 20120610, end: 20120916
  2. AMLODIPINE (AMLODIPINE) [Concomitant]
  3. BENDROFLUMETHIAZOLE (BENDROFLUMETHIAZIDE) [Concomitant]

REACTIONS (2)
  - Cardiac fibrillation [None]
  - Atrial flutter [None]
